FAERS Safety Report 17804954 (Version 3)
Quarter: 2020Q3

REPORT INFORMATION
  Report Type: Report from Study
  Country: US (occurrence: US)
  Receive Date: 20200520
  Receipt Date: 20200715
  Transmission Date: 20201102
  Serious: Yes (Hospitalization)
  Sender: FDA-Public Use
  Company Number: US-ROCHE-2432789

PATIENT
  Age: 71 Year
  Sex: Male
  Weight: 81.6 kg

DRUGS (22)
  1. ADVIL [Concomitant]
     Active Substance: IBUPROFEN
  2. LIPITOR [Concomitant]
     Active Substance: ATORVASTATIN CALCIUM
  3. LIDODERM [Concomitant]
     Active Substance: LIDOCAINE
  4. AV PHOS 250 NEUTRAL [Concomitant]
  5. SODIUM PHOSPHATE MONOBASIC [Concomitant]
     Active Substance: SODIUM PHOSPHATE, MONOBASIC
  6. ULTRAM [Concomitant]
     Active Substance: TRAMADOL HYDROCHLORIDE
  7. ATEZOLIZUMAB. [Suspect]
     Active Substance: ATEZOLIZUMAB
     Indication: HORMONE-REFRACTORY PROSTATE CANCER
     Route: 042
     Dates: start: 20190912
  8. TRESIBA [Concomitant]
     Active Substance: INSULIN DEGLUDEC
  9. XGEVA [Concomitant]
     Active Substance: DENOSUMAB
  10. ASPIRIN. [Concomitant]
     Active Substance: ASPIRIN
  11. COSOPT [Concomitant]
     Active Substance: DORZOLAMIDE HYDROCHLORIDE\TIMOLOL MALEATE
  12. GLUCOPHAGE [Concomitant]
     Active Substance: METFORMIN HYDROCHLORIDE
  13. ZOFRAN [Concomitant]
     Active Substance: ONDANSETRON HYDROCHLORIDE
  14. PERI?COLACE [Concomitant]
     Active Substance: CASANTHRANOL\DOCUSATE SODIUM
  15. LOSARTAN. [Concomitant]
     Active Substance: LOSARTAN
  16. NOVOLOG [Concomitant]
     Active Substance: INSULIN ASPART
  17. XL184 [Suspect]
     Active Substance: CABOZANTINIB
     Indication: HORMONE-REFRACTORY PROSTATE CANCER
     Dosage: MOST RECENT DOSE ON 19/SEP/2019?ON 26/SEP/20219, ORAL CABOZANTINIB 40 MG ONCE PER DAY WAS RESUMED
     Route: 048
     Dates: start: 20190912
  18. XALATAN [Concomitant]
     Active Substance: LATANOPROST
  19. ADALAT [Concomitant]
     Active Substance: NIFEDIPINE
  20. TAMSULOSIN [Concomitant]
     Active Substance: TAMSULOSIN
  21. LACTULOSE. [Concomitant]
     Active Substance: LACTULOSE
  22. GLYCERINE [Concomitant]
     Active Substance: GLYCERIN

REACTIONS (1)
  - Metastases to adrenals [Recovered/Resolved]

NARRATIVE: CASE EVENT DATE: 20190919
